FAERS Safety Report 25544365 (Version 2)
Quarter: 2025Q3

REPORT INFORMATION
  Report Type: Spontaneous
  Country: PA (occurrence: PA)
  Receive Date: 20250711
  Receipt Date: 20250917
  Transmission Date: 20251020
  Serious: Yes (Other)
  Sender: PFIZER
  Company Number: PA-PFIZER INC-PV202500082233

PATIENT
  Age: 70 Year
  Sex: Female

DRUGS (2)
  1. LORBRENA [Suspect]
     Active Substance: LORLATINIB
  2. LORBRENA [Suspect]
     Active Substance: LORLATINIB

REACTIONS (11)
  - Suicidal ideation [Unknown]
  - Blood cholesterol increased [Unknown]
  - Loss of personal independence in daily activities [Unknown]
  - Impaired quality of life [Unknown]
  - Mobility decreased [Unknown]
  - Pain [Unknown]
  - Fatigue [Unknown]
  - Back pain [Unknown]
  - Amnesia [Unknown]
  - Arthralgia [Unknown]
  - Sensitive skin [Unknown]

NARRATIVE: CASE EVENT DATE: 20250707
